FAERS Safety Report 8779630 (Version 1)
Quarter: 2012Q4

REPORT INFORMATION
  Report Type: 
  Country: BR (occurrence: BR)
  Receive Date: 20120912
  Receipt Date: 20120912
  Transmission Date: 20130627
  Serious: Yes (Other)
  Sender: FDA-Public Use
  Company Number: BR-BRISTOL-MYERS SQUIBB COMPANY-16938136

PATIENT
  Sex: Male

DRUGS (1)
  1. APROVEL [Suspect]
     Dosage: Aprovel 300mg
Started 2 years ago

REACTIONS (1)
  - Hyperthyroidism [Unknown]
